FAERS Safety Report 5761314-6 (Version None)
Quarter: 2008Q2

REPORT INFORMATION
  Report Type: 
  Country: None (occurrence: None)
  Receive Date: 20080606
  Receipt Date: 20080521
  Transmission Date: 20081010
  Serious: Yes (Other)
  Sender: FDA-Public Use
  Company Number: JP-MERCK-0805USA05453

PATIENT
  Age: 3 Day
  Weight: 1 kg

DRUGS (4)
  1. PRIMAXIN [Suspect]
     Indication: INFECTION
     Route: 042
  2. [THERAPY UNSPECIFIED] [Suspect]
     Route: 065
  3. CEFOTIAM HYDROCHLORIDE [Suspect]
     Route: 065
  4. CEFAZOLIN SODIUM [Suspect]
     Route: 065

REACTIONS (5)
  - DRUG EXPOSURE DURING PREGNANCY [None]
  - PREMATURE BABY [None]
  - SEPSIS NEONATAL [None]
  - SMALL FOR DATES BABY [None]
  - UMBILICAL ERYTHEMA [None]
